FAERS Safety Report 6120994-6 (Version None)
Quarter: 2009Q1

REPORT INFORMATION
  Report Type: 
  Country: None (occurrence: None)
  Receive Date: 20090317
  Receipt Date: 20090303
  Transmission Date: 20090719
  Serious: Yes (Hospitalization)
  Sender: FDA-Public Use
  Company Number: CL-AVENTIS-200911248GDDC

PATIENT
  Age: 82 Year
  Sex: Male
  Weight: 63.5 kg

DRUGS (7)
  1. AFLIBERCEPT [Suspect]
     Route: 042
     Dates: start: 20090108, end: 20090108
  2. DOCETAXEL [Suspect]
     Route: 042
     Dates: start: 20090108, end: 20090108
  3. PREDNISOLONE [Suspect]
     Route: 048
     Dates: start: 20080923, end: 20090108
  4. ALPRAZOLAM [Concomitant]
  5. LOSARTAN [Concomitant]
  6. REFLEXAN [Concomitant]
  7. SOMNO [Concomitant]
     Dates: start: 19980101

REACTIONS (1)
  - HYPONATRAEMIA [None]
